FAERS Safety Report 12265670 (Version 1)
Quarter: 2016Q2

REPORT INFORMATION
  Report Type: Spontaneous
  Country: US (occurrence: US)
  Receive Date: 20160413
  Receipt Date: 20160413
  Transmission Date: 20160815
  Serious: No
  Sender: FDA-Public Use
  Company Number: US-FERRINGPH-2015FE02707

PATIENT
  Age: 41 Year
  Sex: Female
  Weight: 63.49 kg

DRUGS (1)
  1. DDAVP [Suspect]
     Active Substance: DESMOPRESSIN ACETATE
     Indication: DIABETES INSIPIDUS
     Dosage: 10 ?G/SPRAY, 4-8 NASAL SPRAYS PER DAY
     Route: 045
     Dates: start: 2000

REACTIONS (2)
  - Drug effect incomplete [Not Recovered/Not Resolved]
  - Drug effect variable [Unknown]

NARRATIVE: CASE EVENT DATE: 201502
